FAERS Safety Report 10594345 (Version 2)
Quarter: 2014Q4

REPORT INFORMATION
  Report Type: Report from Study
  Country: US (occurrence: US)
  Receive Date: 20141119
  Receipt Date: 20141119
  Transmission Date: 20150529
  Serious: Yes (Hospitalization)
  Sender: FDA-Public Use
  Company Number: US-ABBVIE-07P-163-0421440-00

PATIENT
  Age: 60 Year
  Sex: Female
  Weight: 118.04 kg

DRUGS (27)
  1. AMITRIPTYLINE [Concomitant]
     Active Substance: AMITRIPTYLINE
     Indication: INSOMNIA
  2. STEROID CREAM [Concomitant]
     Active Substance: UNSPECIFIED INGREDIENT
     Indication: PSORIASIS
     Dosage: QD AND AS NEEDED
     Route: 061
     Dates: start: 1998
  3. METHOTREXATE [Concomitant]
     Active Substance: METHOTREXATE
     Indication: PSORIATIC ARTHROPATHY
  4. PREMARIN [Concomitant]
     Active Substance: ESTROGENS, CONJUGATED
     Indication: MENOPAUSE
     Route: 048
     Dates: start: 2003
  5. HUMIRA [Suspect]
     Active Substance: ADALIMUMAB
     Indication: PSORIATIC ARTHROPATHY
     Route: 058
     Dates: start: 2006, end: 200708
  6. CYMBALTA [Concomitant]
     Active Substance: DULOXETINE HYDROCHLORIDE
     Indication: ANXIETY
  7. DARVOCET [Concomitant]
     Active Substance: ACETAMINOPHEN\PROPOXYPHENE HYDROCHLORIDE
     Indication: PAIN
     Route: 048
  8. NAPROXEN. [Concomitant]
     Active Substance: NAPROXEN
     Indication: PRODUCT USED FOR UNKNOWN INDICATION
  9. STROVITE [Concomitant]
     Indication: PRODUCT USED FOR UNKNOWN INDICATION
  10. BENADRYL [Concomitant]
     Active Substance: DIPHENHYDRAMINE HYDROCHLORIDE
     Indication: PRODUCT USED FOR UNKNOWN INDICATION
  11. HUMIRA [Suspect]
     Active Substance: ADALIMUMAB
     Indication: PSORIASIS
     Route: 050
     Dates: start: 2007
  12. FOLIC ACID. [Concomitant]
     Active Substance: FOLIC ACID
     Indication: VITAMIN SUPPLEMENTATION
     Route: 048
     Dates: start: 200704
  13. NASONEX [Concomitant]
     Active Substance: MOMETASONE FUROATE
     Indication: SINUS DISORDER
     Route: 045
  14. VITAMIN D [Concomitant]
     Active Substance: CHOLECALCIFEROL
     Indication: PRODUCT USED FOR UNKNOWN INDICATION
  15. AMITRIPTYLINE [Concomitant]
     Active Substance: AMITRIPTYLINE
     Indication: DEPRESSION
     Dosage: 1-2 TABS EVERY NIGHT AS REQUIRED
     Route: 048
     Dates: start: 2006
  16. BIOTIN [Concomitant]
     Active Substance: BIOTIN
     Indication: PRODUCT USED FOR UNKNOWN INDICATION
  17. HUMIRA [Suspect]
     Active Substance: ADALIMUMAB
     Route: 058
  18. METHOTREXATE [Concomitant]
     Active Substance: METHOTREXATE
     Indication: PSORIATIC ARTHROPATHY
     Route: 048
     Dates: start: 200704
  19. CYMBALTA [Concomitant]
     Active Substance: DULOXETINE HYDROCHLORIDE
     Indication: DEPRESSION
     Dosage: AT NIGHT
     Route: 048
     Dates: start: 200708
  20. BETAMETHASONE DIPROPIONATE. [Concomitant]
     Active Substance: BETAMETHASONE DIPROPIONATE
     Indication: PRODUCT USED FOR UNKNOWN INDICATION
  21. XANAX [Concomitant]
     Active Substance: ALPRAZOLAM
     Indication: ANXIETY
     Dosage: 1-3 TABS DAILY AS REQUIRED
     Route: 048
  22. XANAX [Concomitant]
     Active Substance: ALPRAZOLAM
     Indication: STRESS
  23. LEXAPRO [Concomitant]
     Active Substance: ESCITALOPRAM OXALATE
     Indication: DEPRESSION
     Route: 048
     Dates: start: 2000
  24. PROPRANOLOL [Concomitant]
     Active Substance: PROPRANOLOL\PROPRANOLOL HYDROCHLORIDE
     Indication: PRODUCT USED FOR UNKNOWN INDICATION
  25. CLOBETASOL [Concomitant]
     Active Substance: CLOBETASOL
     Indication: PRODUCT USED FOR UNKNOWN INDICATION
  26. PROTONIX [Concomitant]
     Active Substance: PANTOPRAZOLE SODIUM
     Indication: GASTROOESOPHAGEAL REFLUX DISEASE
     Route: 048
  27. METHIMAZOLE. [Concomitant]
     Active Substance: METHIMAZOLE
     Indication: PRODUCT USED FOR UNKNOWN INDICATION

REACTIONS (39)
  - Weight increased [Not Recovered/Not Resolved]
  - Skin infection [Not Recovered/Not Resolved]
  - Cholelithiasis [Not Recovered/Not Resolved]
  - Sinusitis [Recovered/Resolved]
  - Eye disorder [Unknown]
  - Tendonitis [Not Recovered/Not Resolved]
  - Asthenia [Not Recovered/Not Resolved]
  - Breast disorder [Not Recovered/Not Resolved]
  - Fall [Unknown]
  - Injury [Unknown]
  - Fungal infection [Recovered/Resolved]
  - Scratch [Not Recovered/Not Resolved]
  - Sinusitis [Recovered/Resolved]
  - Drug ineffective [Not Recovered/Not Resolved]
  - Arthralgia [Not Recovered/Not Resolved]
  - Diverticulum [Not Recovered/Not Resolved]
  - Fungal infection [Unknown]
  - Arthralgia [Not Recovered/Not Resolved]
  - Depression [Not Recovered/Not Resolved]
  - Arthralgia [Not Recovered/Not Resolved]
  - Anxiety [Recovered/Resolved]
  - Hepatitis [Unknown]
  - Underdose [Unknown]
  - Injection site bruising [Unknown]
  - Stress [Not Recovered/Not Resolved]
  - Alopecia [Not Recovered/Not Resolved]
  - Gallbladder oedema [Not Recovered/Not Resolved]
  - Thyrotoxic crisis [Recovered/Resolved]
  - Palpitations [Recovered/Resolved]
  - Skin ulcer [Not Recovered/Not Resolved]
  - Bursitis [Not Recovered/Not Resolved]
  - Skin infection [Not Recovered/Not Resolved]
  - Purulent discharge [Recovered/Resolved]
  - Local swelling [Not Recovered/Not Resolved]
  - Joint swelling [Not Recovered/Not Resolved]
  - Psoriatic arthropathy [Unknown]
  - Obsessive-compulsive disorder [Not Recovered/Not Resolved]
  - Pain of skin [Not Recovered/Not Resolved]
  - Infection [Not Recovered/Not Resolved]

NARRATIVE: CASE EVENT DATE: 2006
